FAERS Safety Report 6957802-7 (Version None)
Quarter: 2010Q3

REPORT INFORMATION
  Report Type: 
  Country: None (occurrence: None)
  Receive Date: 20100831
  Receipt Date: 20100823
  Transmission Date: 20110219
  Serious: Yes (Hospitalization)
  Sender: FDA-Public Use
  Company Number: US-BAYER-201031548NA

PATIENT
  Age: 21 Year
  Sex: Female

DRUGS (1)
  1. MIRENA [Suspect]
     Indication: CONTRACEPTION
     Route: 015
     Dates: start: 20070501, end: 20080809

REACTIONS (3)
  - DEVICE DISLOCATION [None]
  - OVARIAN CYST [None]
  - PROCEDURAL PAIN [None]
